FAERS Safety Report 17652992 (Version 1)
Quarter: 2020Q2

REPORT INFORMATION
  Report Type: Spontaneous
  Country: BR (occurrence: BR)
  Receive Date: 20200409
  Receipt Date: 20200409
  Transmission Date: 20200713
  Serious: Yes (Other)
  Sender: FDA-Public Use
  Company Number: BR-BAYER-2020-054443

PATIENT
  Sex: Female

DRUGS (2)
  1. QLAIRA [Suspect]
     Active Substance: DIENOGEST\ESTRADIOL VALERATE
     Indication: MENSTRUAL CYCLE MANAGEMENT
  2. QLAIRA [Suspect]
     Active Substance: DIENOGEST\ESTRADIOL VALERATE
     Indication: ENDOMETRIOSIS
     Dosage: UNK
     Route: 048
     Dates: start: 201911

REACTIONS (9)
  - Constipation [None]
  - Diarrhoea [None]
  - Influenza [None]
  - Coronavirus infection [None]
  - Product use in unapproved indication [None]
  - Abdominal pain [None]
  - Dyspepsia [None]
  - Gastrointestinal disorder [None]
  - Therapeutic response unexpected [None]
